FAERS Safety Report 17636123 (Version 3)
Quarter: 2020Q2

REPORT INFORMATION
  Report Type: Spontaneous
  Country: FR (occurrence: FR)
  Receive Date: 20200407
  Receipt Date: 20200504
  Transmission Date: 20200713
  Serious: Yes (Other)
  Sender: FDA-Public Use
  Company Number: FR-HORIZON-BUP-0021-2020

PATIENT
  Sex: Female

DRUGS (1)
  1. AMMONAPS [Suspect]
     Active Substance: SODIUM PHENYLBUTYRATE
     Indication: PROGRESSIVE FAMILIAL INTRAHEPATIC CHOLESTASIS

REACTIONS (6)
  - Symptom recurrence [Unknown]
  - Intentional product use issue [Unknown]
  - Pruritus [Unknown]
  - Off label use [Unknown]
  - Cholestasis [Unknown]
  - Patient dissatisfaction with treatment [Unknown]
